FAERS Safety Report 5288069-6 (Version None)
Quarter: 2007Q2

REPORT INFORMATION
  Report Type: 
  Country: None (occurrence: None)
  Receive Date: 20070405
  Receipt Date: 20070403
  Transmission Date: 20071010
  Serious: Yes (Other)
  Sender: FDA-Public Use
  Company Number: GB-BRISTOL-MYERS SQUIBB COMPANY-13737929

PATIENT
  Age: 70 Year
  Sex: Male

DRUGS (2)
  1. PRAVASTATIN [Suspect]
     Route: 048
  2. RABEPRAZOLE SODIUM [Concomitant]

REACTIONS (2)
  - PAIN IN EXTREMITY [None]
  - RENAL FAILURE ACUTE [None]
